FAERS Safety Report 22369023 (Version 2)
Quarter: 2023Q2

REPORT INFORMATION
  Report Type: Spontaneous
  Country: CH (occurrence: CH)
  Receive Date: 20230525
  Receipt Date: 20230613
  Transmission Date: 20230721
  Serious: No
  Sender: FDA-Public Use
  Company Number: US-Emergent Biosolutions-23000193

PATIENT
  Age: 49 Year
  Sex: Male

DRUGS (1)
  1. BAT [Suspect]
     Active Substance: EQUINE BOTULINUM NEUROTOXIN A/B/C/D/E/F/G IMMUNE FAB2
     Indication: Botulism
     Dosage: 16 MILLIGRAM ACTIVE SUBSTANCE IN 144 ML NACL
     Route: 065
     Dates: start: 20230514, end: 20230514

REACTIONS (1)
  - No adverse event [Unknown]
